FAERS Safety Report 5452075-9 (Version None)
Quarter: 2007Q3

REPORT INFORMATION
  Report Type: 
  Country: None (occurrence: None)
  Receive Date: 20070912
  Receipt Date: 20070828
  Transmission Date: 20080115
  Serious: Yes (Hospitalization)
  Sender: FDA-Public Use
  Company Number: 017677

PATIENT
  Age: 17 Year
  Sex: Male

DRUGS (1)
  1. CLARAVIS [Suspect]
     Indication: ACNE CYSTIC
     Dosage: 40 MG, QD, ORAL
     Route: 048
     Dates: start: 20060807, end: 20070301

REACTIONS (3)
  - FRACTURE [None]
  - HIP ARTHROPLASTY [None]
  - ROAD TRAFFIC ACCIDENT [None]
